FAERS Safety Report 7535546-0 (Version None)
Quarter: 2011Q2

REPORT INFORMATION
  Report Type: 
  Country: None (occurrence: None)
  Receive Date: 20110601
  Receipt Date: 20110530
  Transmission Date: 20111010
  Serious: Yes (Death)
  Sender: FDA-Public Use
  Company Number: 2007SP017687

PATIENT
  Age: 59 Year
  Sex: Male
  Weight: 60 kg

DRUGS (18)
  1. BETAMETHASONE [Concomitant]
  2. LANSOPRAZOLE [Concomitant]
  3. FAMOTIDINE [Concomitant]
  4. GASMOTIN [Concomitant]
  5. BIOFERMIN R [Concomitant]
  6. SULFAMETHOXAZOLE [Concomitant]
  7. RAMELTEON [Concomitant]
  8. TEMODAL [Suspect]
     Indication: ANAPLASTIC ASTROCYTOMA
     Dosage: SEE IMAGE
     Route: 048
     Dates: start: 20070225, end: 20070301
  9. TEMODAL [Suspect]
     Indication: ANAPLASTIC ASTROCYTOMA
     Dosage: SEE IMAGE
     Route: 048
     Dates: start: 20070604, end: 20070608
  10. TEMODAL [Suspect]
     Indication: ANAPLASTIC ASTROCYTOMA
     Dosage: SEE IMAGE
     Route: 048
     Dates: start: 20070325, end: 20070329
  11. TEMODAL [Suspect]
     Indication: ANAPLASTIC ASTROCYTOMA
     Dosage: SEE IMAGE
     Route: 048
     Dates: start: 20070507, end: 20070511
  12. TEMODAL [Suspect]
     Indication: ANAPLASTIC ASTROCYTOMA
     Dosage: SEE IMAGE
     Route: 048
     Dates: start: 20070128, end: 20070201
  13. TEMODAL [Suspect]
     Indication: ANAPLASTIC ASTROCYTOMA
     Dosage: SEE IMAGE
     Route: 048
     Dates: start: 20061122, end: 20061231
  14. PHENOBARBITAL TAB [Concomitant]
  15. MAGNESIUM OXIDE [Concomitant]
  16. MARZULENE [Concomitant]
  17. OMEPRAZOLE [Concomitant]
  18. PHOHEPARUM [Concomitant]

REACTIONS (4)
  - LYMPHOCYTE COUNT DECREASED [None]
  - PNEUMONIA [None]
  - OXYGEN SATURATION DECREASED [None]
  - BLOOD PRESSURE DECREASED [None]
